FAERS Safety Report 9272963 (Version 1)
Quarter: 2013Q2

REPORT INFORMATION
  Report Type: Spontaneous
  Country: US (occurrence: US)
  Receive Date: 20130506
  Receipt Date: 20130506
  Transmission Date: 20140414
  Serious: Yes (Other)
  Sender: FDA-Public Use
  Company Number: US-ASTRAZENECA-2013SE30319

PATIENT
  Age: 60 Year
  Sex: Female
  Weight: 53.1 kg

DRUGS (19)
  1. ANASTROZOLE [Suspect]
     Indication: BREAST CANCER FEMALE
     Route: 048
     Dates: start: 20110716, end: 201211
  2. FULVESTRANT [Suspect]
     Indication: BREAST CANCER FEMALE
     Route: 030
     Dates: start: 201211
  3. QUETIAPINE [Suspect]
     Indication: SLEEP DISORDER
     Route: 048
  4. TAMOXIFEN [Suspect]
     Indication: BREAST CANCER FEMALE
     Dosage: DAILY
     Route: 048
     Dates: start: 201006, end: 20110716
  5. GAMMA KNIFE RADIATION TREATMENTS [Suspect]
     Indication: BRAIN CANCER METASTATIC
     Route: 065
     Dates: start: 2012
  6. DOCUSATE SODIUM [Concomitant]
     Indication: CONSTIPATION
  7. HYDROMORPHINE [Concomitant]
     Indication: PAIN
  8. DIPHENHYDRAMINE HCL [Concomitant]
     Indication: SLEEP DISORDER
  9. DIPHENHYDRAMINE HCL [Concomitant]
     Indication: MULTIPLE ALLERGIES
  10. GABAPENTIN [Concomitant]
     Indication: PRURITUS
  11. LORATADINE [Concomitant]
     Indication: PRURITUS
  12. VITAMIN D [Concomitant]
     Indication: VITAMIN SUPPLEMENTATION
  13. CALCIUM [Concomitant]
     Indication: MINERAL SUPPLEMENTATION
     Dosage: DAILY
  14. RANITIDINE HCL [Concomitant]
     Indication: ABDOMINAL PAIN UPPER
  15. RANITIDINE HCL [Concomitant]
     Indication: DYSPEPSIA
  16. RANITIDINE HCL [Concomitant]
     Indication: PRURITUS
  17. OXYCODONE [Concomitant]
     Indication: CONDITION AGGRAVATED
     Dosage: UNKNOWN PRN
  18. MEN-PHOR CREAM [Concomitant]
     Indication: PRURITUS
     Route: 061
  19. ZOMETA [Concomitant]
     Indication: BONE DISORDER

REACTIONS (26)
  - Malignant neoplasm progression [Not Recovered/Not Resolved]
  - Brain neoplasm malignant [Not Recovered/Not Resolved]
  - Pain [Unknown]
  - Skin swelling [Not Recovered/Not Resolved]
  - Local swelling [Not Recovered/Not Resolved]
  - Skin ulcer haemorrhage [Not Recovered/Not Resolved]
  - Skin exfoliation [Not Recovered/Not Resolved]
  - Feeling abnormal [Not Recovered/Not Resolved]
  - Nervousness [Not Recovered/Not Resolved]
  - Dizziness [Not Recovered/Not Resolved]
  - Skin discolouration [Not Recovered/Not Resolved]
  - Skin disorder [Not Recovered/Not Resolved]
  - Constipation [Not Recovered/Not Resolved]
  - Hiccups [Not Recovered/Not Resolved]
  - Filariasis [Not Recovered/Not Resolved]
  - Skin tightness [Not Recovered/Not Resolved]
  - Quality of life decreased [Not Recovered/Not Resolved]
  - Alopecia [Unknown]
  - Skin burning sensation [Not Recovered/Not Resolved]
  - Pruritus generalised [Not Recovered/Not Resolved]
  - Rash [Not Recovered/Not Resolved]
  - Decreased appetite [Not Recovered/Not Resolved]
  - Dry skin [Not Recovered/Not Resolved]
  - Asthenia [Not Recovered/Not Resolved]
  - Off label use [Unknown]
  - Off label use [Unknown]
